FAERS Safety Report 15963215 (Version 2)
Quarter: 2019Q3

REPORT INFORMATION
  Report Type: Spontaneous
  Country: FR (occurrence: FR)
  Receive Date: 20190214
  Receipt Date: 20190812
  Transmission Date: 20191004
  Serious: Yes (Other)
  Sender: FDA-Public Use
  Company Number: FR-MYLANLABS-2019M1011923

PATIENT
  Age: 70 Year
  Sex: Male
  Weight: 76 kg

DRUGS (3)
  1. BUPIVACAINE MYLAN 20 MG/4 ML, SPINAL INJECTION [Suspect]
     Active Substance: BUPIVACAINE
     Indication: SURGERY
  2. BUPIVACAINE MYLAN 20 MG/4 ML, SPINAL INJECTION [Suspect]
     Active Substance: BUPIVACAINE
     Indication: INGUINAL HERNIA
     Dosage: 10 MILLIGRAM
     Route: 037
     Dates: start: 20190122, end: 20190122
  3. BUPIVACAINE MYLAN 20 MG/4 ML, SPINAL INJECTION [Suspect]
     Active Substance: BUPIVACAINE
     Indication: SPINAL ANAESTHESIA
     Dosage: 2 MILLILITER
     Dates: start: 20190122

REACTIONS (2)
  - Drug ineffective [Recovered/Resolved]
  - Therapeutic product effect delayed [Unknown]

NARRATIVE: CASE EVENT DATE: 20190122
